FAERS Safety Report 14526409 (Version 9)
Quarter: 2018Q3

REPORT INFORMATION
  Report Type: Report from Study
  Country: HU (occurrence: HU)
  Receive Date: 20180213
  Receipt Date: 20180816
  Transmission Date: 20181010
  Serious: Yes (Death, Hospitalization)
  Sender: FDA-Public Use
  Company Number: HU-PFIZER INC-2018061424

PATIENT
  Age: 52 Year
  Sex: Male
  Weight: 67 kg

DRUGS (5)
  1. NUTRIDRINK COMPACT [Concomitant]
     Dosage: 1 DF, UNK
     Route: 048
     Dates: start: 20170707
  2. CLEXANE [Concomitant]
     Active Substance: ENOXAPARIN SODIUM
     Dosage: 0.8 DF, UNK
     Dates: start: 20150507
  3. SUNITINIB MALATE. [Suspect]
     Active Substance: SUNITINIB MALATE
     Dosage: 50 MG, CYCLIC (ONCE DAILY (QD) FOR 4 WEEKS AND THEN OFF TREATMENT FOR 2 WEEKS) (CYCLE 5)
     Route: 048
     Dates: start: 20171225, end: 20180121
  4. SUNITINIB MALATE. [Suspect]
     Active Substance: SUNITINIB MALATE
     Indication: RENAL CELL CARCINOMA
     Dosage: 50 MG, CYCLIC (ONCE DAILY (QD) FOR 4 WEEKS AND THEN OFF TREATMENT FOR 2 WEEKS)
     Route: 048
     Dates: start: 20170710, end: 20171210
  5. EMOZUL [Concomitant]
     Dosage: 40 DF, UNK
     Dates: start: 20170520

REACTIONS (1)
  - Mucosal inflammation [Recovered/Resolved]

NARRATIVE: CASE EVENT DATE: 20180122
